FAERS Safety Report 16162255 (Version 1)
Quarter: 2019Q2

REPORT INFORMATION
  Report Type: Spontaneous
  Country: US (occurrence: US)
  Receive Date: 20190404
  Receipt Date: 20190404
  Transmission Date: 20190711
  Serious: Yes (Death)
  Sender: FDA-Public Use
  Company Number: None

PATIENT
  Age: 76 Year
  Sex: Male
  Weight: 110.25 kg

DRUGS (5)
  1. PLAVIX [Concomitant]
     Active Substance: CLOPIDOGREL BISULFATE
  2. CIPROFLOXACIN HCL 500MG TAB [Suspect]
     Active Substance: CIPROFLOXACIN
     Indication: ANTIBIOTIC PROPHYLAXIS
     Dosage: ?          QUANTITY:2 TABLET(S);?
     Route: 048
  3. ONE-A-DAY MEN^S VITAMIN [Concomitant]
  4. LOSANTAN [Concomitant]
  5. ALMODIPINE [Concomitant]

REACTIONS (14)
  - Hip arthroplasty [None]
  - Palpitations [None]
  - Product complaint [None]
  - Legal problem [None]
  - Headache [None]
  - Dizziness [None]
  - Heart rate increased [None]
  - Joint swelling [None]
  - Aortic dissection rupture [None]
  - Pain [None]
  - Myalgia [None]
  - Hypertension [None]
  - Arthralgia [None]
  - Muscle swelling [None]

NARRATIVE: CASE EVENT DATE: 20161110
